FAERS Safety Report 8020759-4 (Version None)
Quarter: 2012Q1

REPORT INFORMATION
  Report Type: 
  Country: None (occurrence: None)
  Receive Date: 20120104
  Receipt Date: 20111228
  Transmission Date: 20120608
  Serious: Yes (Hospitalization)
  Sender: FDA-Public Use
  Company Number: US-BIOGENIDEC-2011BI048923

PATIENT
  Age: 40 Year
  Sex: Male

DRUGS (2)
  1. AVONEX [Suspect]
     Indication: MULTIPLE SCLEROSIS
     Route: 030
     Dates: start: 20070810
  2. AVONEX [Suspect]
     Route: 030
     Dates: start: 20031210, end: 20050801

REACTIONS (3)
  - POST PROCEDURAL COMPLICATION [None]
  - NERVE COMPRESSION [None]
  - MOBILITY DECREASED [None]
